FAERS Safety Report 6763302-X (Version None)
Quarter: 2010Q2

REPORT INFORMATION
  Report Type: 
  Country: None (occurrence: None)
  Receive Date: 20100610
  Receipt Date: 20100601
  Transmission Date: 20101027
  Serious: Yes (Hospitalization, Other)
  Sender: FDA-Public Use
  Company Number: US-JNJFOC-20100602675

PATIENT
  Age: 13 Year
  Sex: Male
  Weight: 70 kg

DRUGS (3)
  1. HALOPERIDOL [Suspect]
     Indication: DRUG USE FOR UNKNOWN INDICATION
     Route: 042
  2. MIDAZOLAM HCL [Suspect]
     Indication: DRUG USE FOR UNKNOWN INDICATION
     Route: 042
  3. HYDROMORPHONE HCL [Suspect]
     Indication: DRUG USE FOR UNKNOWN INDICATION
     Route: 042

REACTIONS (3)
  - ADVERSE DRUG REACTION [None]
  - AKATHISIA [None]
  - DYSTONIA [None]
